FAERS Safety Report 7358930-7 (Version None)
Quarter: 2011Q1

REPORT INFORMATION
  Report Type: 
  Country: None (occurrence: None)
  Receive Date: 20110317
  Receipt Date: 20110307
  Transmission Date: 20110831
  Serious: Yes (Hospitalization)
  Sender: FDA-Public Use
  Company Number: US-BRISTOL-MYERS SQUIBB COMPANY-15608540

PATIENT
  Age: 70 Year
  Sex: Male
  Weight: 69 kg

DRUGS (13)
  1. PHENERGAN [Concomitant]
     Indication: PROPHYLAXIS OF NAUSEA AND VOMITING
     Route: 048
     Dates: start: 20110124
  2. MINOCYCLINE HCL [Concomitant]
     Indication: DERMATITIS ACNEIFORM
     Route: 048
     Dates: start: 20110214
  3. ALOXI [Concomitant]
     Indication: PREMEDICATION
     Dosage: DAY 1 OF CHEMO CYCLE 24JAN2011:0.25MG 14FEB2011:0.25MG
     Route: 042
     Dates: start: 20110124
  4. MIRALAX [Concomitant]
     Indication: CONSTIPATION
     Route: 048
     Dates: start: 20110221
  5. FLUOROURACIL [Suspect]
     Indication: HEAD AND NECK CANCER
     Dosage: NO OF INF:2
     Route: 042
     Dates: start: 20110124, end: 20110221
  6. POTASSIUM CHLORIDE [Concomitant]
     Indication: HYPOKALAEMIA
     Dosage: 1DF:20 UNITS NOS
     Route: 048
     Dates: start: 20110131
  7. BENADRYL [Concomitant]
     Indication: PREMEDICATION
     Dosage: 1DF:50 UNITS NOS
     Route: 042
     Dates: start: 20110124
  8. MANNITOL [Concomitant]
     Indication: PREMEDICATION
     Route: 042
     Dates: start: 20110124
  9. CLINDAMYCIN [Concomitant]
     Indication: DERMATITIS ACNEIFORM
     Route: 061
     Dates: start: 20110207
  10. CETUXIMAB [Suspect]
     Indication: HEAD AND NECK CANCER
     Dosage: NO OF INF:6
     Route: 042
     Dates: start: 20110124, end: 20110228
  11. CISPLATIN [Suspect]
     Indication: HEAD AND NECK CANCER
     Dosage: NO OF INF:2
     Route: 042
     Dates: start: 20110124, end: 20110221
  12. ANZEMET [Concomitant]
     Indication: PROPHYLAXIS OF NAUSEA AND VOMITING
     Route: 048
     Dates: start: 20110124
  13. DECADRON [Concomitant]
     Indication: PREMEDICATION
     Route: 036
     Dates: start: 20110124

REACTIONS (3)
  - MALNUTRITION [None]
  - VOMITING [None]
  - FATIGUE [None]
